FAERS Safety Report 6207688-3 (Version None)
Quarter: 2009Q2

REPORT INFORMATION
  Report Type: 
  Country: None (occurrence: None)
  Receive Date: 20090528
  Receipt Date: 20090520
  Transmission Date: 20091009
  Serious: Yes (Hospitalization)
  Sender: FDA-Public Use
  Company Number: GB-WATSON-2008-06629

PATIENT
  Sex: Female

DRUGS (5)
  1. TRELSTAR DEPOT [Suspect]
     Indication: BREAST CANCER
     Dosage: 3.75 MG, SINGLE ON 09-SEP-2008
     Route: 030
     Dates: start: 20080909, end: 20080909
  2. TRELSTAR DEPOT [Suspect]
     Dosage: 3.75 MG, SINGLE ON AUG-2008
     Route: 030
     Dates: start: 20080801, end: 20080801
  3. TRELSTAR DEPOT [Suspect]
     Dosage: 3.75 MG, SINGLE ON 16-JUL-2008
     Route: 030
     Dates: start: 20080716, end: 20080716
  4. EXEMESTANE [Suspect]
     Indication: BREAST CANCER
     Dosage: 25 MG, UNK
     Route: 048
     Dates: start: 20080716, end: 20081007
  5. EXEMESTANE [Suspect]
     Indication: ADJUVANT THERAPY

REACTIONS (3)
  - ELECTROCARDIOGRAM QT PROLONGED [None]
  - HEADACHE [None]
  - SINUS BRADYCARDIA [None]
